FAERS Safety Report 7433580-2 (Version None)
Quarter: 2011Q2

REPORT INFORMATION
  Report Type: 
  Country: None (occurrence: None)
  Receive Date: 20110422
  Receipt Date: 20110412
  Transmission Date: 20111010
  Serious: Yes (Hospitalization, Other)
  Sender: FDA-Public Use
  Company Number: US-WATSON-2011-05134

PATIENT
  Sex: Female
  Weight: 56.7 kg

DRUGS (9)
  1. PREMARIN [Concomitant]
     Indication: HORMONE REPLACEMENT THERAPY
     Dosage: ONE TABLET DAILY
     Route: 048
     Dates: start: 19910101
  2. PROVERA [Concomitant]
     Indication: HORMONE REPLACEMENT THERAPY
     Dosage: ONE TABLET DAILY
     Route: 048
     Dates: start: 19910101
  3. PREDNISONE [Suspect]
     Indication: PRODUCT USED FOR UNKNOWN INDICATION
     Dosage: 1 TABLET DAILY FOR 4 DAYS
     Route: 048
     Dates: start: 20110310, end: 20110313
  4. PREDNISONE [Suspect]
     Dosage: 3 TABS DAILY FOR 4 DAYS
     Route: 048
     Dates: start: 20110302, end: 20110305
  5. PREDNISONE [Suspect]
     Dosage: 2 TABS DAILY FOR 4 DAYS
     Route: 048
     Dates: start: 20110306, end: 20110309
  6. PREDNISONE [Suspect]
     Dosage: 4 TABS DAILY FOR 4 DAYS
     Route: 048
     Dates: start: 20110226, end: 20110301
  7. PREDNISONE (WATSON LABORATORIES) [Suspect]
     Indication: BRONCHITIS
     Dosage: 1/4 TAB IN AM, 1/4 TAB IN PM
     Route: 048
     Dates: start: 20110127, end: 20110127
  8. PREDNISONE [Suspect]
     Dosage: 5 TABS DAILY FOR 4 DAYS
     Route: 048
     Dates: start: 20110222, end: 20110225
  9. PREDNISONE [Suspect]
     Dosage: 6 TABLETS DAILY FOR 3 DAYS
     Route: 048
     Dates: start: 20110219, end: 20110221

REACTIONS (12)
  - SWELLING [None]
  - DYSPNOEA EXERTIONAL [None]
  - PALPITATIONS [None]
  - THERMAL BURN [None]
  - MYOCARDIAL INFARCTION [None]
  - PARAESTHESIA [None]
  - WEIGHT INCREASED [None]
  - HYPOAESTHESIA [None]
  - PNEUMONIA [None]
  - FEELING JITTERY [None]
  - DRUG HYPERSENSITIVITY [None]
  - CHRONIC OBSTRUCTIVE PULMONARY DISEASE [None]
